FAERS Safety Report 5870772-8 (Version None)
Quarter: 2008Q3

REPORT INFORMATION
  Report Type: 
  Country: None (occurrence: None)
  Receive Date: 20080904
  Receipt Date: 20080821
  Transmission Date: 20090109
  Serious: Yes (Hospitalization)
  Sender: FDA-Public Use
  Company Number: US-ELI_LILLY_AND_COMPANY-US200808002281

PATIENT
  Sex: Male

DRUGS (1)
  1. CYMBALTA [Suspect]
     Indication: DEPRESSION
     Dosage: 30 MG, DAILY (1/D)
     Dates: start: 20080801, end: 20080804

REACTIONS (11)
  - ABDOMINAL DISTENSION [None]
  - ANOREXIA [None]
  - BONE DISORDER [None]
  - DRY MOUTH [None]
  - GAIT DISTURBANCE [None]
  - IMPAIRED SELF-CARE [None]
  - PAIN [None]
  - SKIN DISCOLOURATION [None]
  - SLEEP DISORDER [None]
  - SWELLING [None]
  - TENSION [None]
